FAERS Safety Report 7997466-7 (Version None)
Quarter: 2011Q4

REPORT INFORMATION
  Report Type: 
  Country: None (occurrence: None)
  Receive Date: 20111221
  Receipt Date: 20111221
  Transmission Date: 20120403
  Serious: Yes (Death)
  Sender: FDA-Public Use
  Company Number: None

PATIENT
  Age: 54 Year
  Sex: Male
  Weight: 84.7 kg

DRUGS (7)
  1. WARFARIN SODIUM [Concomitant]
     Route: 048
  2. OMNICEF [Concomitant]
     Route: 048
  3. LOVENOX [Concomitant]
     Route: 058
  4. PROFILNINE SD [Suspect]
     Indication: ANTICOAGULANT THERAPY
     Dosage: 4120 UNITS
     Route: 042
     Dates: start: 20111218, end: 20111218
  5. ASPIRIN [Concomitant]
     Route: 048
  6. NORCO 5/325MG [Concomitant]
     Route: 048
  7. DULCOLAX [Concomitant]
     Route: 048

REACTIONS (2)
  - ATRIAL THROMBOSIS [None]
  - CARDIO-RESPIRATORY ARREST [None]
